FAERS Safety Report 7213785-6 (Version None)
Quarter: 2011Q1

REPORT INFORMATION
  Report Type: 
  Country: None (occurrence: None)
  Receive Date: 20110106
  Receipt Date: 20101230
  Transmission Date: 20110831
  Serious: Yes (Hospitalization, Other)
  Sender: FDA-Public Use
  Company Number: US-US-EMD SERONO, INC.-231647J10USA

PATIENT
  Sex: Female
  Weight: 111 kg

DRUGS (14)
  1. REBIF [Suspect]
     Indication: MULTIPLE SCLEROSIS
     Route: 058
     Dates: start: 20020101, end: 20100301
  2. ATIVAN [Concomitant]
     Indication: ANXIETY
  3. HALOPERIDOL [Concomitant]
  4. LEVOCARNITINE [Concomitant]
  5. COGENTIN [Concomitant]
  6. LITHIUM CARBONATE [Concomitant]
     Indication: BIPOLAR DISORDER
     Dates: end: 20060101
  7. ZIPRASIDONE HCL [Concomitant]
     Indication: BIPOLAR DISORDER
  8. ZOLPIDEM [Concomitant]
  9. NORVASC [Concomitant]
  10. FISH OIL [Concomitant]
  11. REBIF [Suspect]
     Route: 058
     Dates: start: 20100101
  12. KLONOPIN [Concomitant]
  13. DEPAKOTE [Concomitant]
  14. LIPITOR [Concomitant]

REACTIONS (8)
  - ATAXIA [None]
  - CARDIAC FAILURE CONGESTIVE [None]
  - RENAL FAILURE [None]
  - CONVULSION [None]
  - MUSCULAR WEAKNESS [None]
  - TREMOR [None]
  - PNEUMONIA [None]
  - MULTIPLE SCLEROSIS RELAPSE [None]
